FAERS Safety Report 9288970 (Version 5)
Quarter: 2014Q1

REPORT INFORMATION
  Report Type: Report from Study
  Country: DE (occurrence: DE)
  Receive Date: 20130514
  Receipt Date: 20140214
  Transmission Date: 20141002
  Serious: Yes (Hospitalization)
  Sender: FDA-Public Use
  Company Number: DE-BRISTOL-MYERS SQUIBB COMPANY-18862680

PATIENT
  Age: 74 Year
  Sex: Male
  Weight: 79 kg

DRUGS (11)
  1. IPILIMUMAB [Suspect]
     Indication: MALIGNANT MELANOMA
     Route: 042
     Dates: start: 20130319, end: 20130613
  2. ARCOXIA [Concomitant]
  3. DUTASTERIDE [Concomitant]
  4. MOVICOL [Concomitant]
  5. SIFROL [Concomitant]
  6. STALEVO [Concomitant]
  7. GLIMEPIRIDE [Concomitant]
     Dates: start: 20120101
  8. L-THYROXINE [Concomitant]
     Dates: start: 20120101
  9. METFORMIN HCL [Concomitant]
     Dates: start: 20120101
  10. PANTOZOL [Concomitant]
     Dates: start: 20120101
  11. NYSTADERM [Concomitant]
     Dates: start: 20130409

REACTIONS (1)
  - Pneumonia [Recovered/Resolved]
